FAERS Safety Report 5480240-3 (Version None)
Quarter: 2007Q4

REPORT INFORMATION
  Report Type: 
  Country: None (occurrence: None)
  Receive Date: 20071003
  Receipt Date: 20070924
  Transmission Date: 20080405
  Serious: Yes (Life-Threatening)
  Sender: FDA-Public Use
  Company Number: OMPQ-GE-0709S-1231

PATIENT
  Age: 67 Year
  Sex: Male

DRUGS (2)
  1. ACCUPAQUE (IOHEXOL) [Suspect]
     Indication: DRUG USE FOR UNKNOWN INDICATION
     Dosage: SINGLE DOSE, I.V.
     Route: 042
     Dates: start: 20070903, end: 20070903
  2. ACCUPAQUE (IOHEXOL) [Suspect]

REACTIONS (2)
  - BLOOD PRESSURE DECREASED [None]
  - RESPIRATORY FAILURE [None]
